FAERS Safety Report 8773347 (Version 1)
Quarter: 2012Q4

REPORT INFORMATION
  Report Type: 
  Country: CN (occurrence: CN)
  Receive Date: 20120907
  Receipt Date: 20120907
  Transmission Date: 20130627
  Serious: Yes (Death, Other)
  Sender: FDA-Public Use
  Company Number: CN-ROCHE-1110628

PATIENT

DRUGS (3)
  1. CELLCEPT [Suspect]
     Indication: PROPHYLAXIS AGAINST TRANSPLANT REJECTION
  2. TACROLIMUS [Suspect]
     Indication: PROPHYLAXIS AGAINST TRANSPLANT REJECTION
  3. METHYLPREDNISOLONE [Concomitant]
     Indication: LIVER TRANSPLANT
     Route: 042

REACTIONS (3)
  - Jaundice acholuric [Fatal]
  - Epstein-Barr virus infection [Not Recovered/Not Resolved]
  - Cytomegalovirus infection [Unknown]
